FAERS Safety Report 21785465 (Version 2)
Quarter: 2024Q1

REPORT INFORMATION
  Report Type: Spontaneous
  Country: US (occurrence: US)
  Receive Date: 20221227
  Receipt Date: 20240207
  Transmission Date: 20240410
  Serious: Yes (Other)
  Sender: FDA-Public Use
  Company Number: US-SA-SAC20221214000034

PATIENT

DRUGS (5)
  1. LARONIDASE [Suspect]
     Active Substance: LARONIDASE
     Indication: Mucopolysaccharidosis I
     Dosage: 11.6 MG, QW
     Route: 042
     Dates: start: 20191003
  2. LARONIDASE [Suspect]
     Active Substance: LARONIDASE
     Dosage: 11.6 (UNIT NOT KNOWN),  QW
     Route: 042
     Dates: start: 20180321
  3. LORATADINE [Concomitant]
     Active Substance: LORATADINE
     Indication: Product used for unknown indication
  4. CHLORHEXIDINE ACETATE [Concomitant]
     Active Substance: CHLORHEXIDINE ACETATE
     Indication: Product used for unknown indication
  5. VANCOMYCIN HYDROCHLORIDE [Concomitant]
     Active Substance: VANCOMYCIN HYDROCHLORIDE
     Indication: Product used for unknown indication

REACTIONS (8)
  - Growth retardation [Not Recovered/Not Resolved]
  - Sleep disorder due to a general medical condition [Not Recovered/Not Resolved]
  - Ear infection [Recovered/Resolved]
  - Anxiety [Not Recovered/Not Resolved]
  - Precocious puberty [Not Recovered/Not Resolved]
  - Intentional dose omission [Unknown]
  - Ear infection [Unknown]
  - Ear pain [Unknown]

NARRATIVE: CASE EVENT DATE: 20221101
